FAERS Safety Report 7893214-X (Version None)
Quarter: 2011Q4

REPORT INFORMATION
  Report Type: 
  Country: None (occurrence: None)
  Receive Date: 20111104
  Receipt Date: 20111031
  Transmission Date: 20120403
  Serious: Yes (Hospitalization, Other)
  Sender: FDA-Public Use
  Company Number: US-PFIZER INC-2009252692

PATIENT
  Sex: Female

DRUGS (7)
  1. CHANTIX [Suspect]
     Dosage: 0.5 MG/1 MG
     Route: 048
     Dates: start: 20070601, end: 20071201
  2. XANAX [Concomitant]
     Indication: ANXIETY
     Dosage: UNK
     Dates: start: 19990101
  3. ZOLOFT [Concomitant]
     Indication: DEPRESSION
     Dosage: UNK
     Dates: start: 20020101
  4. HYDROCODONE [Concomitant]
     Indication: BACK PAIN
     Dosage: UNK
     Dates: start: 20010101
  5. TOPAMAX [Concomitant]
     Indication: MOOD SWINGS
     Dosage: UNK
     Dates: start: 20030101, end: 20100101
  6. CHANTIX [Suspect]
     Indication: SMOKING CESSATION THERAPY
     Dosage: 0.5 MG/1 MG
     Route: 048
     Dates: start: 20060801, end: 20060901
  7. ALBUTEROL [Concomitant]
     Indication: CHRONIC OBSTRUCTIVE PULMONARY DISEASE
     Dosage: UNK
     Dates: start: 20000101

REACTIONS (7)
  - INTENTIONAL OVERDOSE [None]
  - ANXIETY [None]
  - MOOD SWINGS [None]
  - AGGRESSION [None]
  - SUICIDE ATTEMPT [None]
  - DEPRESSION [None]
  - ABNORMAL BEHAVIOUR [None]
